FAERS Safety Report 8502612-2 (Version None)
Quarter: 2012Q3

REPORT INFORMATION
  Report Type: 
  Country: None (occurrence: None)
  Receive Date: 20120711
  Receipt Date: 20120709
  Transmission Date: 20120928
  Serious: Yes (Other)
  Sender: FDA-Public Use
  Company Number: JP-PFIZER INC-2012163309

PATIENT
  Age: 60 Year
  Sex: Male

DRUGS (1)
  1. VARENICLINE TARTRATE [Suspect]
     Dosage: 2MG DAILY
     Route: 048
     Dates: end: 20120701

REACTIONS (2)
  - DEPRESSED LEVEL OF CONSCIOUSNESS [None]
  - AMNESIA [None]
